FAERS Safety Report 9323793 (Version 4)
Quarter: 2013Q4

REPORT INFORMATION
  Report Type: Spontaneous
  Country: US (occurrence: US)
  Receive Date: 20130603
  Receipt Date: 20131209
  Transmission Date: 20140711
  Serious: Yes (Disabling, Other)
  Sender: FDA-Public Use
  Company Number: US-PFIZER INC-2013165686

PATIENT
  Age: 23 Year
  Sex: Female

DRUGS (4)
  1. GEODON [Suspect]
     Indication: SCHIZOPHRENIA
     Dosage: UNK
     Dates: end: 201303
  2. GEODON [Suspect]
     Indication: BIPOLAR DISORDER
  3. TRIHEXYPHENIDYL [Concomitant]
     Dosage: 2 MG, 1X/DAY
     Route: 048
  4. CLONAZEPAM [Concomitant]
     Dosage: 0.5 MG,1 TABLET  EVERY AM AND 2 TABLETS QHS)
     Route: 048

REACTIONS (6)
  - Tardive dyskinesia [Not Recovered/Not Resolved]
  - Dystonia [Not Recovered/Not Resolved]
  - Convulsion [Not Recovered/Not Resolved]
  - Central nervous system lesion [Not Recovered/Not Resolved]
  - Torticollis [Not Recovered/Not Resolved]
  - Pain [Not Recovered/Not Resolved]
